FAERS Safety Report 7656053-0 (Version None)
Quarter: 2011Q3

REPORT INFORMATION
  Report Type: 
  Country: None (occurrence: None)
  Receive Date: 20110804
  Receipt Date: 20110722
  Transmission Date: 20111222
  Serious: Yes (Hospitalization, Other)
  Sender: FDA-Public Use
  Company Number: CA-ELI_LILLY_AND_COMPANY-CA201107006131

PATIENT
  Sex: Male

DRUGS (10)
  1. DIAZEPAM [Concomitant]
  2. ZYPREXA [Suspect]
     Indication: BIPOLAR DISORDER
     Dosage: 10 MG, UNKNOWN
  3. CARBAMAZEPINE [Concomitant]
  4. NOZINAN [Concomitant]
  5. ZYPREXA [Suspect]
     Dosage: 5 MG, QD
  6. SEROQUEL [Concomitant]
  7. MIDAZOLAM HCL [Concomitant]
  8. BENZTROPINE MESYLATE [Concomitant]
  9. LORAZEPAM [Concomitant]
  10. HALDOL [Concomitant]

REACTIONS (24)
  - THROMBOSIS [None]
  - ANAEMIA [None]
  - SEPSIS [None]
  - INTRA-ABDOMINAL HAEMATOMA [None]
  - DIABETIC COMA [None]
  - HAEMORRHAGE [None]
  - RHABDOMYOLYSIS [None]
  - MOUTH HAEMORRHAGE [None]
  - CARDIAC FAILURE CONGESTIVE [None]
  - DEEP VEIN THROMBOSIS [None]
  - EPISTAXIS [None]
  - CONVULSION [None]
  - LIVER INJURY [None]
  - HEPATOSPLENOMEGALY [None]
  - RENAL FAILURE [None]
  - TYPE 2 DIABETES MELLITUS [None]
  - DIABETIC AMYOTROPHY [None]
  - GENERALISED OEDEMA [None]
  - BLOOD TRIGLYCERIDES INCREASED [None]
  - ABASIA [None]
  - STAPHYLOCOCCAL INFECTION [None]
  - ATRIAL FIBRILLATION [None]
  - ACANTHOSIS NIGRICANS [None]
  - HYPERTENSION [None]
